FAERS Safety Report 4773311-8 (Version None)
Quarter: 2005Q3

REPORT INFORMATION
  Report Type: 
  Country: None (occurrence: None)
  Receive Date: 20050920
  Receipt Date: 20050915
  Transmission Date: 20060218
  Serious: Yes (Death)
  Sender: FDA-Public Use
  Company Number: PHRM2005FR02454

PATIENT
  Age: 29 Year
  Sex: Female
  Weight: 59 kg

DRUGS (24)
  1. DIPRIVAN [Concomitant]
     Indication: GENERAL ANAESTHESIA
     Route: 042
     Dates: start: 20050809
  2. CELOCURIN [Concomitant]
     Indication: GENERAL ANAESTHESIA
     Route: 042
     Dates: start: 20050809
  3. NIMBEX [Concomitant]
     Indication: GENERAL ANAESTHESIA
     Route: 042
     Dates: start: 20050809
  4. SYNTOCINON [Suspect]
     Dosage: 15 ML/H
     Dates: start: 20050808
  5. SYNTOCINON [Suspect]
     Dosage: 45 ML/H
     Dates: start: 20050808
  6. SYNTOCINON [Suspect]
     Dosage: 65 ML/H
     Dates: start: 20050809
  7. SYNTOCINON [Suspect]
     Dosage: 90 ML/H
     Dates: start: 20050809
  8. SYNTOCINON [Suspect]
     Dosage: 120 ML/H
     Dates: start: 20050809
  9. PROSTINE [Concomitant]
     Dosage: UNK, ONCE/SINGLE
     Route: 067
     Dates: start: 20050808, end: 20050808
  10. DESFLURANE [Concomitant]
     Indication: GENERAL ANAESTHESIA
     Dates: start: 20050809
  11. SUFENTANIL CITRATE [Concomitant]
     Indication: GENERAL ANAESTHESIA
     Route: 042
     Dates: start: 20050809
  12. NAROPIN [Suspect]
     Dates: start: 20050809
  13. EPHEDRINE [Suspect]
     Indication: HYPOTENSION
     Dosage: 9 MG, ONCE/SINGLE
     Route: 042
     Dates: start: 20050809, end: 20050809
  14. EPHEDRINE [Suspect]
     Dosage: 6 MG, ONCE/SINGLE
     Route: 042
     Dates: start: 20050809, end: 20050809
  15. XYLOCAINE [Concomitant]
     Dosage: 5 ML, UNK
     Dates: start: 20050809
  16. CLAMOXYL [Concomitant]
     Dates: start: 20050807
  17. ADRENALINE [Suspect]
     Indication: CAROTID PULSE DECREASED
     Dosage: 0.2 MG, ONCE/SINGLE
     Dates: start: 20050809, end: 20050809
  18. ADRENALINE [Suspect]
     Dosage: 0.2 MG, ONCE/SINGLE
     Dates: start: 20050809, end: 20050809
  19. ADRENALINE [Suspect]
     Dosage: UNK, ONCE/SINGLE
     Dates: start: 20050809, end: 20050809
  20. ADRENALINE [Suspect]
     Dates: start: 20050809
  21. NALADOR [Suspect]
     Dosage: 10 ML/H
     Dates: start: 20050809
  22. NALADOR [Suspect]
     Dosage: 20 ML/H
     Dates: start: 20050809
  23. NALADOR [Suspect]
     Dosage: 30 ML/H
     Dates: start: 20050809, end: 20050809
  24. NALADOR [Suspect]
     Dosage: 40 ML/H
     Dates: start: 20050809, end: 20050809

REACTIONS (13)
  - ACUTE PULMONARY OEDEMA [None]
  - ARTERIAL LIGATION [None]
  - CAESAREAN SECTION [None]
  - CARDIAC ARREST [None]
  - CARDIAC MASSAGE [None]
  - CARDIOVERSION [None]
  - CAROTID PULSE DECREASED [None]
  - HAEMODYNAMIC INSTABILITY [None]
  - HAEMOGLOBIN DECREASED [None]
  - HYPOTENSION [None]
  - HYSTERECTOMY [None]
  - MYDRIASIS [None]
  - POSTPARTUM HAEMORRHAGE [None]
